FAERS Safety Report 6103409-3 (Version None)
Quarter: 2009Q1

REPORT INFORMATION
  Report Type: 
  Country: None (occurrence: None)
  Receive Date: 20090305
  Receipt Date: 20090220
  Transmission Date: 20090719
  Serious: Yes (Hospitalization)
  Sender: FDA-Public Use
  Company Number: PHHY2008MX00915

PATIENT
  Sex: Female

DRUGS (2)
  1. DIOVAN HCT [Suspect]
     Indication: HYPERTENSION
     Dosage: 160/25 MG, 1 TABLET PER DAY
     Route: 048
     Dates: start: 20060301, end: 20080121
  2. LASILACTON [Concomitant]
     Dates: start: 20080101, end: 20080101

REACTIONS (4)
  - BLOOD PRESSURE ABNORMAL [None]
  - ELECTROLYTE IMBALANCE [None]
  - VERTIGO [None]
  - VESTIBULAR DISORDER [None]
